FAERS Safety Report 6969532-6 (Version None)
Quarter: 2010Q3

REPORT INFORMATION
  Report Type: 
  Country: None (occurrence: None)
  Receive Date: 20100907
  Receipt Date: 20100907
  Transmission Date: 20110219
  Serious: Yes (Hospitalization, Other)
  Sender: FDA-Public Use
  Company Number: None

PATIENT
  Age: 16 Year
  Sex: Female
  Weight: 56.6996 kg

DRUGS (2)
  1. CIPROFLOXACIN [Suspect]
     Indication: URINARY TRACT INFECTION
     Dosage: 500 MG TWICE DAILY PO
     Route: 048
     Dates: start: 20100129, end: 20100207
  2. CIPROFLOXACIN [Suspect]
     Indication: URINARY TRACT INFECTION
     Dosage: 250 MG TWICE DAILY PO
     Route: 048
     Dates: start: 20100509, end: 20100511

REACTIONS (28)
  - ANXIETY [None]
  - ARTHRALGIA [None]
  - ASTHENIA [None]
  - BURNING SENSATION [None]
  - CHEST PAIN [None]
  - DEPRESSION [None]
  - DRUG INTOLERANCE [None]
  - EAR PAIN [None]
  - EDUCATIONAL PROBLEM [None]
  - FEELING OF BODY TEMPERATURE CHANGE [None]
  - HEART RATE INCREASED [None]
  - INSOMNIA [None]
  - JOINT CREPITATION [None]
  - LYMPHADENOPATHY [None]
  - MALAISE [None]
  - MUSCLE SPASMS [None]
  - MUSCLE TWITCHING [None]
  - NECK PAIN [None]
  - NEPHROLITHIASIS [None]
  - OVARIAN CYST [None]
  - PALPITATIONS [None]
  - PARAESTHESIA [None]
  - PERIPHERAL COLDNESS [None]
  - SALIVARY GLAND CALCULUS [None]
  - SINUS DISORDER [None]
  - TENDONITIS [None]
  - TINNITUS [None]
  - WEIGHT DECREASED [None]
